FAERS Safety Report 25090240 (Version 1)
Quarter: 2025Q1

REPORT INFORMATION
  Report Type: Spontaneous
  Country: US (occurrence: US)
  Receive Date: 20250318
  Receipt Date: 20250318
  Transmission Date: 20250409
  Serious: Yes (Other)
  Sender: ROCHE
  Company Number: US-ROCHE-10000230117

PATIENT
  Age: 45 Year
  Sex: Female
  Weight: 40.82 kg

DRUGS (4)
  1. RITUXAN [Suspect]
     Active Substance: RITUXIMAB
     Indication: Thrombosis
     Route: 042
     Dates: start: 20190320, end: 20190405
  2. RITUXAN [Suspect]
     Active Substance: RITUXIMAB
     Indication: Thrombocytopenia
     Dosage: 6 HOUR INFUSION
     Route: 042
     Dates: start: 20210119, end: 20210208
  3. RITUXAN [Suspect]
     Active Substance: RITUXIMAB
     Indication: Purpura
     Route: 042
     Dates: start: 20230806, end: 20230808
  4. RITUXAN [Suspect]
     Active Substance: RITUXIMAB
     Route: 042
     Dates: start: 20231206, end: 20231206

REACTIONS (4)
  - Alopecia [Not Recovered/Not Resolved]
  - Off label use [Unknown]
  - Respiratory arrest [Recovered/Resolved]
  - Hair growth abnormal [Not Recovered/Not Resolved]

NARRATIVE: CASE EVENT DATE: 20190320
